FAERS Safety Report 8097178 (Version 2)
Quarter: 2012Q4

REPORT INFORMATION
  Report Type: 
  Country: GB (occurrence: GB)
  Receive Date: 20110819
  Receipt Date: 20120917
  Transmission Date: 20130627
  Serious: Yes (Death, Hospitalization, Other)
  Sender: FDA-Public Use
  Company Number: GB-RANBAXY-2011R1-46875

PATIENT
  Age: 80 Year
  Sex: Male
  Weight: 62 kg

DRUGS (1)
  1. AMOXICILLIN\CLAVULANATE POTASSIUM [Suspect]
     Indication: LIVER ABSCESS
     Dosage: 1 DF, tid
     Route: 048
     Dates: start: 20110701, end: 201107

REACTIONS (9)
  - Peritonitis [Fatal]
  - Decreased appetite [Unknown]
  - Dyspnoea [Unknown]
  - Confusional state [Unknown]
  - Diarrhoea [Unknown]
  - Hallucination [Unknown]
  - Poisoning [Unknown]
  - Small intestinal obstruction [Unknown]
  - Insomnia [Unknown]
